FAERS Safety Report 12542648 (Version 4)
Quarter: 2017Q2

REPORT INFORMATION
  Report Type: Spontaneous
  Country: US (occurrence: US)
  Receive Date: 20160709
  Receipt Date: 20170503
  Transmission Date: 20170830
  Serious: Yes (Hospitalization)
  Sender: FDA-Public Use
  Company Number: PHEH2016US016886

PATIENT
  Age: 29 Year
  Sex: Female

DRUGS (12)
  1. PROMACTA [Suspect]
     Active Substance: ELTROMBOPAG OLAMINE
     Dosage: 75 MG, UNK
     Route: 048
     Dates: start: 20170210
  2. PRENATAL [Concomitant]
     Active Substance: VITAMINS
     Indication: PREGNANCY
     Dosage: UNK
     Route: 048
     Dates: start: 2016
  3. PROMACTA [Suspect]
     Active Substance: ELTROMBOPAG OLAMINE
     Dosage: 75 MG, UNK
     Route: 048
     Dates: start: 2015
  4. PROMACTA [Suspect]
     Active Substance: ELTROMBOPAG OLAMINE
     Dosage: 100 MG, UNK
     Route: 048
     Dates: start: 20170412
  5. ALBUTEROL. [Concomitant]
     Active Substance: ALBUTEROL
     Indication: ASTHMA
     Dosage: 90 MG, UNK
     Route: 055
     Dates: start: 2005
  6. PREDNISONE. [Concomitant]
     Active Substance: PREDNISONE
     Dosage: UNK
     Route: 048
  7. LABETALOL [Concomitant]
     Active Substance: LABETALOL\LABETALOL HYDROCHLORIDE
     Indication: HYPERTENSION
     Dosage: 200 MG, UNK
     Route: 048
     Dates: start: 20170118
  8. PNV [Concomitant]
     Indication: PRODUCT USED FOR UNKNOWN INDICATION
     Dosage: UNK UNK, QD
     Route: 048
     Dates: end: 2016
  9. PROMACTA [Suspect]
     Active Substance: ELTROMBOPAG OLAMINE
     Dosage: 75 MG, UNK
     Route: 048
     Dates: start: 20111221
  10. RECLIPSEN [Concomitant]
     Active Substance: DESOGESTREL\ETHINYL ESTRADIOL
     Indication: PRODUCT USED FOR UNKNOWN INDICATION
     Route: 065
  11. PREDNISONE. [Concomitant]
     Active Substance: PREDNISONE
     Indication: IMMUNE THROMBOCYTOPENIC PURPURA
     Dosage: 2.5 MG, UNK
     Route: 048
     Dates: start: 2005, end: 20161005
  12. PROMACTA [Suspect]
     Active Substance: ELTROMBOPAG OLAMINE
     Indication: IMMUNE THROMBOCYTOPENIC PURPURA
     Dosage: 100 MG, UNK
     Route: 048

REACTIONS (7)
  - Petechiae [Unknown]
  - Maternal exposure during pregnancy [Unknown]
  - Eclampsia [Recovered/Resolved]
  - Normal newborn [Unknown]
  - Gingival bleeding [Unknown]
  - Platelet count increased [Recovered/Resolved with Sequelae]
  - Platelet count decreased [Unknown]

NARRATIVE: CASE EVENT DATE: 20170125
